FAERS Safety Report 6570162-9 (Version None)
Quarter: 2010Q1

REPORT INFORMATION
  Report Type: 
  Country: None (occurrence: None)
  Receive Date: 20100202
  Receipt Date: 20100202
  Transmission Date: 20100710
  Serious: Yes (Hospitalization)
  Sender: FDA-Public Use
  Company Number: None

PATIENT
  Age: 42 Year
  Sex: Male
  Weight: 102.0593 kg

DRUGS (1)
  1. CHANTIX [Suspect]
     Indication: NICOTINE DEPENDENCE
     Dosage: 1MG BID PO
     Route: 048
     Dates: start: 20091109, end: 20091110

REACTIONS (9)
  - EYELID PTOSIS [None]
  - HEADACHE [None]
  - HYPERTENSION [None]
  - LETHARGY [None]
  - LOSS OF CONSCIOUSNESS [None]
  - PARTIAL SEIZURES [None]
  - SYNCOPE [None]
  - TONIC CLONIC MOVEMENTS [None]
  - TREMOR [None]
